FAERS Safety Report 21054494 (Version 1)
Quarter: 2022Q3

REPORT INFORMATION
  Report Type: Spontaneous
  Country: CN (occurrence: CN)
  Receive Date: 20220707
  Receipt Date: 20220707
  Transmission Date: 20221027
  Serious: Yes (Other)
  Sender: FDA-Public Use
  Company Number: CN-PFIZER INC-PV202200015798

PATIENT
  Age: 70 Year
  Sex: Female
  Weight: 53 kg

DRUGS (3)
  1. CELEBREX [Suspect]
     Active Substance: CELECOXIB
     Indication: Pain
     Dosage: 1 PILL, 1X/DAY
     Route: 048
     Dates: start: 20200819, end: 20200823
  2. DYNASTAT [Suspect]
     Active Substance: PARECOXIB SODIUM
     Indication: Pain
     Dosage: 40 MG, 2X/DAY
     Route: 042
     Dates: start: 20200822, end: 20200824
  3. ACETAMINOPHEN\DIHYDROCODEINE BITARTRATE [Suspect]
     Active Substance: ACETAMINOPHEN\DIHYDROCODEINE BITARTRATE
     Indication: Pain
     Dosage: 1 TABLET, 2X/DAY
     Route: 048
     Dates: start: 20200823, end: 20200831

REACTIONS (1)
  - Liver injury [Unknown]

NARRATIVE: CASE EVENT DATE: 20200828
